FAERS Safety Report 11283020 (Version 1)
Quarter: 2015Q3

REPORT INFORMATION
  Report Type: Spontaneous
  Country: GB (occurrence: None)
  Receive Date: 20150716
  Receipt Date: 20150716
  Transmission Date: 20151125
  Serious: Yes (Hospitalization)
  Sender: FDA-Public Use
  Company Number: GB-H14001-15-01268

PATIENT
  Age: 72 Year
  Sex: Female

DRUGS (1)
  1. VANCOMYCIN (VANCOMYCIN) (UNKNOWN) (VANCOMYCIN) [Suspect]
     Active Substance: VANCOMYCIN
     Indication: NEUTROPENIC SEPSIS
     Dosage: NOT OTHERWISE SPECIFIED
     Route: 042
     Dates: start: 20150629, end: 20150629

REACTIONS (4)
  - Back pain [None]
  - Bradycardia [None]
  - Dermatitis allergic [None]
  - Electrocardiogram QT prolonged [None]

NARRATIVE: CASE EVENT DATE: 20150629
